FAERS Safety Report 4579621-1 (Version None)
Quarter: 2005Q1

REPORT INFORMATION
  Report Type: 
  Country: None (occurrence: None)
  Receive Date: 20050210
  Receipt Date: 20050128
  Transmission Date: 20050727
  Serious: Yes (Life-Threatening)
  Sender: FDA-Public Use
  Company Number: 2005-DE-00364ZA

PATIENT
  Age: 12 Day
  Sex: Male

DRUGS (3)
  1. VIRAMUNE [Suspect]
     Indication: ANTIVIRAL PROPHYLAXIS
     Dosage: STRENGTH 50 M/5ML, DAILY DOSE: 2 MG/KG (SEE TEXT)PO
     Route: 048
     Dates: start: 20040301, end: 20050101
  2. VIRAMUNE [Suspect]
     Indication: HUMAN IMMUNODEFICIENCY VIRUS TRANSMISSION
     Dosage: STRENGTH 50 M/5ML, DAILY DOSE: 2 MG/KG (SEE TEXT)PO
     Route: 048
     Dates: start: 20040301, end: 20050101
  3. RETROVIR [Suspect]
     Indication: ANTIVIRAL PROPHYLAXIS
     Dosage: PO
     Route: 048
     Dates: start: 20050113

REACTIONS (1)
  - NECROTISING COLITIS [None]
